FAERS Safety Report 10288582 (Version 2)
Quarter: 2015Q3

REPORT INFORMATION
  Report Type: Spontaneous
  Country: US (occurrence: US)
  Receive Date: 20140709
  Receipt Date: 20150817
  Transmission Date: 20151125
  Serious: No
  Sender: FDA-Public Use
  Company Number: US-GILEAD-2013-0086852

PATIENT
  Age: 55 Year
  Sex: Female

DRUGS (4)
  1. LETAIRIS [Suspect]
     Active Substance: AMBRISENTAN
     Indication: PRODUCT USED FOR UNKNOWN INDICATION
     Dosage: 5 MG, UNK
     Route: 048
  2. REVATIO [Concomitant]
     Active Substance: SILDENAFIL CITRATE
  3. LYRICA [Concomitant]
     Active Substance: PREGABALIN
  4. TYVASO [Concomitant]
     Active Substance: TREPROSTINIL

REACTIONS (8)
  - Confusional state [Unknown]
  - Nervousness [Unknown]
  - Tremor [Unknown]
  - Cough [Unknown]
  - Product taste abnormal [Unknown]
  - Asthenia [Unknown]
  - Muscular weakness [Unknown]
  - Musculoskeletal disorder [Unknown]

NARRATIVE: CASE EVENT DATE: 20131028
